FAERS Safety Report 18985006 (Version 6)
Quarter: 2021Q3

REPORT INFORMATION
  Report Type: Spontaneous
  Country: GB (occurrence: GB)
  Receive Date: 20210309
  Receipt Date: 20210904
  Transmission Date: 20211014
  Serious: Yes (Other)
  Sender: FDA-Public Use
  Company Number: GB-ACCORD-218862

PATIENT
  Age: 52 Year
  Sex: Female

DRUGS (36)
  1. DOCETAXEL. [Suspect]
     Active Substance: DOCETAXEL
     Indication: PRODUCT USED FOR UNKNOWN INDICATION
     Dosage: 180 MG, TIW
     Route: 042
     Dates: start: 20151231, end: 20160212
  2. ESTRIOL [Concomitant]
     Active Substance: ESTRIOL
     Dosage: 0.1% CREAM AS NEEDED.?2?3 WEEKS
     Route: 067
     Dates: start: 20150415
  3. TRASTUZUMAB. [Suspect]
     Active Substance: TRASTUZUMAB
     Indication: BREAST CANCER METASTATIC
     Route: 058
     Dates: start: 20151231
  4. EUMOVATE [Concomitant]
     Active Substance: CLOBETASONE BUTYRATE
     Dosage: AS NEEDED, 1 DF, QMO (AS NEEDED)
     Route: 061
     Dates: start: 201904, end: 20190502
  5. FEXOFENADINE [Concomitant]
     Active Substance: FEXOFENADINE HYDROCHLORIDE
     Dosage: AS NEEDED
     Route: 048
     Dates: start: 20190516
  6. SYSTANE (HYPROMELLOSE 2910 (4000 MPA.S)) [Concomitant]
     Active Substance: HYPROMELLOSE 2910 (4000 MPA.S)
     Dosage: AS NEEDED
     Route: 047
  7. ACICLOVIR [Concomitant]
     Active Substance: ACYCLOVIR
     Dosage: 0.5 OT, QD
     Route: 048
     Dates: start: 20190606, end: 20190627
  8. DEXAFREE [Concomitant]
     Active Substance: DEXAMETHASONE SODIUM PHOSPHATE
     Route: 047
     Dates: start: 20191127
  9. EUCALYPTUS GLOBULUS [Concomitant]
     Active Substance: EUCALYPTUS GLOBULUS LEAF
     Route: 061
     Dates: start: 20191219, end: 20191219
  10. OMEPRAZOLE. [Concomitant]
     Active Substance: OMEPRAZOLE
     Route: 048
     Dates: start: 20160212
  11. METOCLOPRAMIDE. [Concomitant]
     Active Substance: METOCLOPRAMIDE
     Route: 048
     Dates: start: 20200619
  12. NITROFURANTOIN/NITROFURANTOIN SODIUM [Concomitant]
     Active Substance: NITROFURANTOIN
     Route: 048
     Dates: start: 20200407, end: 20200410
  13. CLOBETASONE/CLOBETASONE BUTYRATE [Concomitant]
     Route: 061
  14. CODEINE PHOSPHATE/PARACETAMOL [Concomitant]
     Active Substance: ACETAMINOPHEN\CODEINE PHOSPHATE
     Dosage: AS NEEDED
     Route: 048
     Dates: start: 20190719
  15. HYPROMELLOSE/HYPROMELLOSE PHTHALATE [Concomitant]
     Active Substance: HYPROMELLOSE PHTHALATE\HYPROMELLOSES
     Route: 065
     Dates: start: 20160831
  16. BENZYDAMINE [Concomitant]
     Active Substance: BENZYDAMINE
     Dates: start: 20200710
  17. CHLORHEXIDINE [Concomitant]
     Active Substance: CHLORHEXIDINE
     Dates: start: 20200710
  18. HYDROCORTISONE. [Concomitant]
     Active Substance: HYDROCORTISONE
     Route: 002
     Dates: start: 20200710
  19. LAVANDULA ANGUSTIFOLIA [Concomitant]
     Route: 061
     Dates: start: 20200117, end: 20200117
  20. LOPERAMIDE [Concomitant]
     Active Substance: LOPERAMIDE
     Dosage: DOSE: 2
     Route: 048
     Dates: start: 20200619
  21. BUDESONIDE/FORMOTEROL FUMARATE [Concomitant]
     Active Substance: BUDESONIDE\FORMOTEROL FUMARATE
     Route: 055
     Dates: start: 20190720
  22. CARBOMER [Concomitant]
     Active Substance: CARBOMER
     Dosage: AS NEEDED
     Route: 047
     Dates: start: 20160706
  23. EURAX [Concomitant]
     Active Substance: CROTAMITON
     Dosage: AS NEEDED
     Route: 061
     Dates: start: 20190516, end: 201906
  24. PARACETAMOL [Concomitant]
     Active Substance: ACETAMINOPHEN
     Dosage: AS NEEDED
     Route: 048
     Dates: start: 2017
  25. LETROZOLE. [Suspect]
     Active Substance: LETROZOLE
     Indication: PRODUCT USED FOR UNKNOWN INDICATION
     Route: 048
     Dates: start: 20160407
  26. ABRAXANE [Suspect]
     Active Substance: PACLITAXEL
     Indication: PRODUCT USED FOR UNKNOWN INDICATION
     Dosage: 111 MG, TIW
     Route: 042
     Dates: start: 20160311, end: 20160324
  27. SALBUTAMOL [Concomitant]
     Active Substance: ALBUTEROL
     Dosage: 2 PUFF AS NEEDED.
     Route: 065
     Dates: start: 20000418
  28. PIRITON [Concomitant]
     Active Substance: CHLORPHENIRAMINE MALEATE
     Route: 048
     Dates: start: 20170503, end: 20170503
  29. HYALURONIC ACID [Concomitant]
     Active Substance: HYALURONIC ACID
     Dosage: AS NEEDED, ALSO FROM 29?OCT?2019
     Route: 061
     Dates: start: 20180226
  30. MELALEUCA ALTERNIFOLIA [Concomitant]
     Active Substance: TEA TREE OIL
     Dosage: AS NEEDED
     Route: 047
     Dates: start: 20191029, end: 20191031
  31. CETIRIZINE [Concomitant]
     Active Substance: CETIRIZINE HYDROCHLORIDE
     Dosage: DAILY AS NEEDED
     Route: 048
     Dates: start: 20170911
  32. LOPERAMIDE [Concomitant]
     Active Substance: LOPERAMIDE
     Indication: DIARRHOEA
     Dosage: 1 CAPSULE AS NEEDED., ALSO FROM 19?JUN?2020
     Route: 048
     Dates: start: 20150415
  33. MOMETASONE [Concomitant]
     Active Substance: MOMETASONE
     Dosage: 2 PUFF QD.
     Route: 065
     Dates: start: 20120925
  34. PARAFFIN SOFT [Concomitant]
     Active Substance: PARAFFIN
     Dosage: AS NEEDED
     Route: 061
     Dates: start: 20180403
  35. MENTHA X PIPERITA [Concomitant]
     Active Substance: MENTHA PIPERITA
     Route: 061
     Dates: start: 20191219, end: 20191219
  36. OENOTHERA BIENNIS [Concomitant]
     Active Substance: OENOTHERA BIENNIS
     Dosage: UNK UNK, QD
     Route: 048
     Dates: start: 2017

REACTIONS (10)
  - Neuropathy peripheral [Recovered/Resolved]
  - Alopecia [Recovered/Resolved]
  - Skin ulcer [Recovered/Resolved]
  - Pain [Recovered/Resolved]
  - Extravasation [Recovered/Resolved]
  - Mass [Recovered/Resolved]
  - Abdominal pain [Recovered/Resolved]
  - Nail disorder [Unknown]
  - Fatigue [Recovered/Resolved]
  - Nausea [Recovered/Resolved]

NARRATIVE: CASE EVENT DATE: 20160211
